FAERS Safety Report 18503916 (Version 1)
Quarter: 2020Q4

REPORT INFORMATION
  Report Type: Spontaneous
  Country: US (occurrence: US)
  Receive Date: 20201113
  Receipt Date: 20201113
  Transmission Date: 20210114
  Serious: Yes (Hospitalization, Disabling, Other)
  Sender: FDA-Public Use
  Company Number: US-PURDUE-USA-2020-0166342

PATIENT
  Sex: Male

DRUGS (15)
  1. SEROQUEL [Concomitant]
     Active Substance: QUETIAPINE FUMARATE
     Indication: SLEEP DISORDER
     Dosage: 30 MG, UNK BED TIME
     Route: 048
  2. PRISTIQ EXTENDED-RELEASE [Concomitant]
     Active Substance: DESVENLAFAXINE SUCCINATE
     Indication: DEPRESSION
     Dosage: 100 MG, DAILY
     Route: 048
  3. ENALAPRIL HCT [Concomitant]
     Active Substance: ENALAPRIL\HYDROCHLOROTHIAZIDE
     Indication: PRODUCT USED FOR UNKNOWN INDICATION
     Dosage: 10-25 MG
     Route: 048
  4. OXYCODONE/ ACETAMINOPHEN TABLETS [Suspect]
     Active Substance: ACETAMINOPHEN\OXYCODONE HYDROCHLORIDE
     Indication: NECK INJURY
     Dosage: UNK
     Route: 048
     Dates: start: 19950301
  5. OXYCONTIN [Suspect]
     Active Substance: OXYCODONE HYDROCHLORIDE
     Indication: NECK INJURY
     Dosage: UNK
     Route: 048
     Dates: start: 19950301
  6. OXYCODONE HCL CR TABLETS (SIMILAR TO NDA 22-272) [Suspect]
     Active Substance: OXYCODONE HYDROCHLORIDE
     Indication: NECK INJURY
     Dosage: UNK
     Route: 048
     Dates: start: 20200301
  7. MS CONTIN [Suspect]
     Active Substance: MORPHINE SULFATE
     Indication: NECK INJURY
     Dosage: UNK
     Route: 048
     Dates: start: 19950301
  8. DEPAKOTE [Concomitant]
     Active Substance: DIVALPROEX SODIUM
     Indication: MOOD ALTERED
     Dosage: 250 MG, BID
     Route: 048
  9. VIAGRA [Concomitant]
     Active Substance: SILDENAFIL CITRATE
     Indication: PRODUCT USED FOR UNKNOWN INDICATION
     Dosage: 100 MG, DAILY (10 DAYS)
     Route: 048
  10. LORTAB [Concomitant]
     Active Substance: ACETAMINOPHEN\HYDROCODONE BITARTRATE
     Indication: PRODUCT USED FOR UNKNOWN INDICATION
     Dosage: 7.5-500MG UNK
     Route: 048
  11. TRAMADOL. [Suspect]
     Active Substance: TRAMADOL
     Indication: NECK INJURY
     Dosage: UNK
     Route: 065
     Dates: start: 19950301
  12. NORCO [Suspect]
     Active Substance: ACETAMINOPHEN\HYDROCODONE BITARTRATE
     Indication: PAIN
     Dosage: UNK
     Route: 065
     Dates: start: 2018
  13. MORPHINE SULFATE EXTENDED-RELEASE TABLETS (RHODES 74-769, 74-862) [Suspect]
     Active Substance: MORPHINE SULFATE
     Indication: NECK INJURY
     Dosage: UNK
     Route: 048
     Dates: start: 19950301
  14. LIPITOR [Concomitant]
     Active Substance: ATORVASTATIN CALCIUM
     Indication: PRODUCT USED FOR UNKNOWN INDICATION
     Dosage: 20 MG, UNK (30 DAYS)
     Route: 048
  15. HYDROCODONE BITARTRATE AND ACETAMINOPHEN [Suspect]
     Active Substance: ACETAMINOPHEN\HYDROCODONE BITARTRATE
     Indication: NECK INJURY
     Dosage: UNK
     Route: 048
     Dates: start: 19950301

REACTIONS (37)
  - Cerebrovascular accident [Unknown]
  - Neck deformity [Unknown]
  - Post-traumatic stress disorder [Unknown]
  - Mood altered [Unknown]
  - Surgery [Unknown]
  - Lipoma excision [Unknown]
  - Mental disorder [Unknown]
  - Aortic aneurysm [Unknown]
  - Quality of life decreased [Unknown]
  - Emotional distress [Unknown]
  - Injury [Unknown]
  - Cardiovascular disorder [Unknown]
  - General physical health deterioration [Unknown]
  - Spinal laminectomy [Unknown]
  - Foot deformity [Unknown]
  - Hiatus hernia [Unknown]
  - Unevaluable event [Unknown]
  - Visual impairment [Unknown]
  - Exposure to chemical pollution [Unknown]
  - Amino acid metabolism disorder [Unknown]
  - Hyperlipidaemia [Unknown]
  - Joint injury [Unknown]
  - Myalgia [Unknown]
  - Tenderness [Unknown]
  - Procedural pain [Unknown]
  - Carpal tunnel syndrome [Unknown]
  - Disability [Unknown]
  - Dislocation of vertebra [Unknown]
  - Hypertension [Unknown]
  - Neck pain [Unknown]
  - Drug dependence [Unknown]
  - Dementia [Unknown]
  - Weight increased [Unknown]
  - Asthenia [Unknown]
  - Cognitive disorder [Unknown]
  - Arthroscopy [Unknown]
  - Cerebral disorder [Unknown]

NARRATIVE: CASE EVENT DATE: 20120529
